APPROVED DRUG PRODUCT: ACYLANID
Active Ingredient: ACETYLDIGITOXIN
Strength: 0.1MG
Dosage Form/Route: TABLET;ORAL
Application: N009436 | Product #001
Applicant: NOVARTIS PHARMACEUTICALS CORP
Approved: Approved Prior to Jan 1, 1982 | RLD: No | RS: No | Type: DISCN